FAERS Safety Report 4479581-8 (Version None)
Quarter: 2004Q4

REPORT INFORMATION
  Report Type: 
  Country: None (occurrence: None)
  Receive Date: 20041018
  Receipt Date: 20041005
  Transmission Date: 20050328
  Serious: Yes (Hospitalization)
  Sender: FDA-Public Use
  Company Number: 2004073775

PATIENT
  Age: 7 Month
  Sex: Male

DRUGS (2)
  1. DIPHENHYDRAMINE HCL [Suspect]
     Indication: INTENTIONAL OVERDOSE
     Dosage: ORAL
     Route: 048
  2. ALIMEMAZINE (ALIMEMAZINE) [Suspect]
     Indication: INTENTIONAL OVERDOSE
     Dosage: ORAL
     Route: 048

REACTIONS (8)
  - BODY TEMPERATURE DECREASED [None]
  - COMA [None]
  - GLASGOW COMA SCALE ABNORMAL [None]
  - INTENTIONAL MISUSE [None]
  - MENTAL STATUS CHANGES [None]
  - MYDRIASIS [None]
  - POISONING [None]
  - SOMNOLENCE [None]
